FAERS Safety Report 8840051 (Version 3)
Quarter: 2012Q4

REPORT INFORMATION
  Report Type: 
  Country: US (occurrence: US)
  Receive Date: 20121015
  Receipt Date: 20121213
  Transmission Date: 20130627
  Serious: No
  Sender: FDA-Public Use
  Company Number: US-PFIZER INC-2012240603

PATIENT
  Age: 46 Year
  Sex: Female
  Weight: 47.2 kg

DRUGS (3)
  1. XALKORI [Suspect]
     Indication: LUNG NEOPLASM MALIGNANT
     Dosage: 250 mg, 1x/day
     Dates: start: 20120530, end: 2012
  2. XALKORI [Suspect]
     Dosage: 250 mg, UNK
     Dates: start: 20120719
  3. XALKORI [Suspect]
     Dosage: 250 mg, 2x/day
     Dates: start: 201209

REACTIONS (4)
  - Inappropriate schedule of drug administration [Unknown]
  - Eyelid ptosis [Not Recovered/Not Resolved]
  - Eye swelling [Not Recovered/Not Resolved]
  - Asthenopia [Not Recovered/Not Resolved]
